FAERS Safety Report 6567349-8 (Version None)
Quarter: 2010Q1

REPORT INFORMATION
  Report Type: 
  Country: None (occurrence: None)
  Receive Date: 20100202
  Receipt Date: 20100122
  Transmission Date: 20100710
  Serious: Yes (Hospitalization, Disabling)
  Sender: FDA-Public Use
  Company Number: PHHY2009AU51524

PATIENT
  Sex: Male
  Weight: 72 kg

DRUGS (2)
  1. CLOZAPINE [Suspect]
     Indication: SCHIZOPHRENIA, CATATONIC TYPE
     Dosage: 700 MG
     Route: 048
     Dates: start: 20061003
  2. LITHIUM CARBONATE [Concomitant]
     Indication: SCHIZOPHRENIA, CATATONIC TYPE
     Dosage: 900 MG NOCTE
     Route: 048

REACTIONS (3)
  - AGGRESSION [None]
  - PSYCHOTIC DISORDER [None]
  - TREATMENT NONCOMPLIANCE [None]
